FAERS Safety Report 6162084-2 (Version None)
Quarter: 2009Q2

REPORT INFORMATION
  Report Type: 
  Country: None (occurrence: None)
  Receive Date: 20090417
  Receipt Date: 20090417
  Transmission Date: 20091009
  Serious: Yes (Hospitalization)
  Sender: FDA-Public Use
  Company Number: None

PATIENT
  Age: 17 Year
  Sex: Male
  Weight: 66.1 kg

DRUGS (8)
  1. VIREAD [Suspect]
     Indication: HIV INFECTION
     Dosage: 300 MILLIGRAMS ONCE A DAY ORALLY
     Route: 048
     Dates: start: 20090313, end: 20090322
  2. EMTRIVA [Suspect]
     Indication: HIV INFECTION
     Dosage: 200 MILLIGRAMS ONCE A DAY ORALLY
     Route: 048
     Dates: start: 20090313, end: 20090322
  3. SUSTIVA [Suspect]
     Indication: HIV INFECTION
     Dosage: 600 MILLIGRAMS ONCE A DAY ORALLY
     Route: 048
     Dates: start: 20090313, end: 20090322
  4. RIFAFOUR(R) [Concomitant]
  5. PYRIDOXINE [Concomitant]
  6. PHENOBARBITAL TAB [Concomitant]
  7. BACTRIM(R) [Concomitant]
  8. RIVOTRIL(R) (CLONAZEPAM) [Concomitant]

REACTIONS (11)
  - BLOOD CHLORIDE DECREASED [None]
  - BLOOD CREATININE INCREASED [None]
  - BLOOD SODIUM DECREASED [None]
  - BLOOD UREA INCREASED [None]
  - CONJUNCTIVITIS [None]
  - HALLUCINATION [None]
  - INAPPROPRIATE ANTIDIURETIC HORMONE SECRETION [None]
  - ORAL CANDIDIASIS [None]
  - STAPHYLOCOCCAL ABSCESS [None]
  - STEVENS-JOHNSON SYNDROME [None]
  - SYPHILIS [None]
